FAERS Safety Report 9519452 (Version 4)
Quarter: 2013Q4

REPORT INFORMATION
  Report Type: Spontaneous
  Country: JP (occurrence: JP)
  Receive Date: 20130912
  Receipt Date: 20131118
  Transmission Date: 20140711
  Serious: Yes (Life-Threatening, Hospitalization)
  Sender: FDA-Public Use
  Company Number: JP-GLAXOSMITHKLINE-B0921595A

PATIENT
  Age: 31 Year
  Sex: Female

DRUGS (2)
  1. LAMICTAL [Suspect]
     Indication: BIPOLAR DISORDER
     Dosage: 25MG PER DAY
     Route: 048
     Dates: start: 20130823, end: 20130830
  2. LIMAS [Concomitant]
     Indication: BIPOLAR DISORDER
     Dosage: 20MG TWICE PER DAY
     Route: 048
     Dates: start: 20130308, end: 20130904

REACTIONS (9)
  - Toxic epidermal necrolysis [Recovered/Resolved with Sequelae]
  - Rash [Recovering/Resolving]
  - Pyrexia [Recovering/Resolving]
  - Erythema [Recovering/Resolving]
  - Pain [Recovering/Resolving]
  - Lymph node pain [Recovering/Resolving]
  - Generalised erythema [Recovering/Resolving]
  - Pigmentation disorder [Not Recovered/Not Resolved]
  - Treatment noncompliance [Unknown]
